FAERS Safety Report 10224546 (Version 3)
Quarter: 2014Q3

REPORT INFORMATION
  Report Type: Spontaneous
  Country: IE (occurrence: IE)
  Receive Date: 20140609
  Receipt Date: 20140723
  Transmission Date: 20150326
  Serious: Yes (Disabling, Other)
  Sender: FDA-Public Use
  Company Number: IE-BAYER-2014-083652

PATIENT
  Age: 50 Year
  Sex: Female

DRUGS (1)
  1. MIRENA [Suspect]
     Active Substance: LEVONORGESTREL
     Indication: MENORRHAGIA
     Dosage: 20 MCG/24HR, CONT
     Route: 015
     Dates: start: 201007, end: 20140422

REACTIONS (12)
  - Activities of daily living impaired [Recovered/Resolved]
  - Crying [Recovered/Resolved]
  - Malaise [Recovered/Resolved]
  - Arthralgia [Recovered/Resolved]
  - Sleep disorder [Recovered/Resolved]
  - Skin odour abnormal [Recovered/Resolved]
  - Fibromyalgia [Recovered/Resolved]
  - Blood pressure abnormal [Recovered/Resolved]
  - Palpitations [Recovered/Resolved]
  - Feeling cold [Recovered/Resolved]
  - Affective disorder [Recovered/Resolved]
  - Lower respiratory tract infection [Recovered/Resolved]

NARRATIVE: CASE EVENT DATE: 2010
